FAERS Safety Report 18103868 (Version 1)
Quarter: 2020Q3

REPORT INFORMATION
  Report Type: Spontaneous
  Country: US (occurrence: US)
  Receive Date: 20200803
  Receipt Date: 20200803
  Transmission Date: 20201103
  Serious: Yes (Hospitalization, Other)
  Sender: FDA-Public Use
  Company Number: US-MYLANLABS-2020M1068804

PATIENT
  Age: 62 Year
  Sex: Female

DRUGS (5)
  1. VITAMIN D3 [Concomitant]
     Active Substance: CHOLECALCIFEROL
     Indication: PRODUCT USED FOR UNKNOWN INDICATION
     Route: 065
  2. CITALOPRAM [Concomitant]
     Active Substance: CITALOPRAM HYDROBROMIDE
     Indication: PRODUCT USED FOR UNKNOWN INDICATION
     Route: 065
  3. ZOLPIDEM [Concomitant]
     Active Substance: ZOLPIDEM TARTRATE
     Indication: PRODUCT USED FOR UNKNOWN INDICATION
     Route: 065
  4. PEXIDARTINIB [Suspect]
     Active Substance: PEXIDARTINIB
     Indication: BREAST CANCER
     Dosage: 1200 MILLIGRAM, QD RECEIVED TOTAL 27 DAILY DOSES
     Route: 048
  5. PACLITAXEL. [Suspect]
     Active Substance: PACLITAXEL
     Indication: BREAST CANCER
     Dosage: 80 MILLIGRAM/SQ. METER, QWRECEIVED TOTAL 3 DOSES
     Route: 042

REACTIONS (9)
  - Drug-induced liver injury [Recovering/Resolving]
  - Depression [Recovering/Resolving]
  - Cholestasis [Recovering/Resolving]
  - Cholecystitis [Recovering/Resolving]
  - Weight decreased [Recovered/Resolved]
  - Biliary obstruction [Recovering/Resolving]
  - Vanishing bile duct syndrome [Recovering/Resolving]
  - Hepatic steatosis [Recovering/Resolving]
  - Hepatic cirrhosis [Recovering/Resolving]
